FAERS Safety Report 5493205-2 (Version None)
Quarter: 2007Q4

REPORT INFORMATION
  Report Type: 
  Country: None (occurrence: None)
  Receive Date: 20071023
  Receipt Date: 20071019
  Transmission Date: 20080405
  Serious: Yes (Hospitalization, Other)
  Sender: FDA-Public Use
  Company Number: B0470086A

PATIENT
  Age: 58 Year
  Sex: Male
  Weight: 76 kg

DRUGS (3)
  1. AVANDAMET [Suspect]
     Route: 048
     Dates: start: 20070124, end: 20070507
  2. METFORMIN HCL [Concomitant]
  3. DIAMICRON [Concomitant]
     Dates: start: 20070123, end: 20070507

REACTIONS (2)
  - ACUTE CORONARY SYNDROME [None]
  - METABOLIC DISORDER [None]
